FAERS Safety Report 9581044 (Version 1)
Quarter: 2013Q3

REPORT INFORMATION
  Report Type: Spontaneous
  Country: US (occurrence: None)
  Receive Date: 20130916
  Receipt Date: 20130916
  Transmission Date: 20140515
  Serious: Yes (Other)
  Sender: FDA-Public Use
  Company Number: JPI-P-025865

PATIENT
  Age: 60 Year
  Sex: Female
  Weight: 62.14 kg

DRUGS (11)
  1. XYREM [Suspect]
     Indication: CATAPLEXY
     Route: 048
     Dates: start: 20110411
  2. XYREM [Suspect]
     Indication: SOMNOLENCE
     Route: 048
     Dates: start: 20110411
  3. DALFAMPRIDINE [Concomitant]
  4. DONEPEZIL HYDROCHLORIDE [Concomitant]
  5. FLUTICASONE PROPIONATE [Concomitant]
  6. HYDROCORTISONE [Concomitant]
  7. IMIPRAMINE [Concomitant]
  8. PREGABALIN [Concomitant]
  9. SOLIFENACIN SUCCINATE [Concomitant]
  10. ATENOLOL W/CHLORTHALIDONE [Concomitant]
  11. TRAMADOL [Concomitant]

REACTIONS (4)
  - Concussion [None]
  - Periorbital contusion [None]
  - Fall [None]
  - Headache [None]
